FAERS Safety Report 9825701 (Version 1)
Quarter: 2013Q4

REPORT INFORMATION
  Report Type: Spontaneous
  Country: US (occurrence: None)
  Receive Date: 20131101
  Receipt Date: 20131101
  Transmission Date: 20140711
  Serious: Yes (Other)
  Sender: FDA-Public Use
  Company Number: ALL1-2013-00880

PATIENT
  Age: 12 Year
  Sex: Male
  Weight: 45.2 kg

DRUGS (2)
  1. INTUNIV [Suspect]
     Indication: ATTENTION DEFICIT/HYPERACTIVITY DISORDER
     Route: 048
     Dates: start: 201212, end: 201212
  2. CONCERTA (METHYLPHENIDATE HYDROCHLORIDE) [Concomitant]

REACTIONS (1)
  - Syncope [None]
